FAERS Safety Report 18357819 (Version 2)
Quarter: 2020Q4

REPORT INFORMATION
  Report Type: Spontaneous
  Country: IT (occurrence: IT)
  Receive Date: 20201007
  Receipt Date: 20201113
  Transmission Date: 20210114
  Serious: Yes (Hospitalization)
  Sender: FDA-Public Use
  Company Number: IT-ELI_LILLY_AND_COMPANY-IT202009013043

PATIENT
  Age: 45 Year
  Sex: Male

DRUGS (3)
  1. ZYPADHERA [Suspect]
     Active Substance: OLANZAPINE PAMOATE
     Indication: MENTAL DISORDER
     Dosage: 1 DOSAGE FORM, SINGLE
     Route: 030
     Dates: start: 20200923, end: 20200923
  2. ZYPADHERA [Suspect]
     Active Substance: OLANZAPINE PAMOATE
     Indication: MENTAL DISORDER
     Dosage: 1 DOSAGE FORM, SINGLE
     Route: 030
     Dates: start: 20200923, end: 20200923
  3. ZYPADHERA [Suspect]
     Active Substance: OLANZAPINE PAMOATE
     Indication: MENTAL DISORDER
     Dosage: 1 DOSAGE FORM, SINGLE
     Route: 030
     Dates: start: 20200923, end: 20200923

REACTIONS (5)
  - Agitation [Recovered/Resolved]
  - Restless legs syndrome [Recovered/Resolved]
  - Post-injection delirium sedation syndrome [Recovered/Resolved]
  - Muscle contractions involuntary [Recovered/Resolved]
  - Depressed level of consciousness [Recovered/Resolved]

NARRATIVE: CASE EVENT DATE: 20200923
